FAERS Safety Report 4825654-7 (Version None)
Quarter: 2005Q4

REPORT INFORMATION
  Report Type: 
  Country: None (occurrence: None)
  Receive Date: 20051111
  Receipt Date: 20051005
  Transmission Date: 20060501
  Serious: Yes (Other)
  Sender: FDA-Public Use
  Company Number: 200517102US

PATIENT
  Sex: Female
  Weight: 70.5 kg

DRUGS (7)
  1. LANTUS [Suspect]
     Indication: DIABETES MELLITUS NON-INSULIN-DEPENDENT
     Dosage: DOSE UNIT: UNITS
     Route: 051
     Dates: start: 20050930
  2. OPTICLIK (INSULIN INJECTION PEN) [Suspect]
     Dates: start: 20050930
  3. MICRONASE [Concomitant]
     Indication: DIABETES MELLITUS NON-INSULIN-DEPENDENT
     Dosage: DOSE: UNKNOWN
  4. TOPROL-XL [Concomitant]
     Indication: HYPERTENSION
     Dosage: DOSE: UNKNOWN
  5. DIOVAN [Concomitant]
     Indication: HYPERTENSION
  6. TRICOR [Concomitant]
     Dosage: DOSE: UNKNOWN
  7. NORVASC [Concomitant]

REACTIONS (5)
  - BLOOD GLUCOSE INCREASED [None]
  - BLOOD PRESSURE INCREASED [None]
  - DRUG ADMINISTRATION ERROR [None]
  - MEDICAL DEVICE COMPLICATION [None]
  - PHARMACEUTICAL PRODUCT COMPLAINT [None]
